FAERS Safety Report 6121370-2 (Version None)
Quarter: 2009Q1

REPORT INFORMATION
  Report Type: 
  Country: None (occurrence: None)
  Receive Date: 20090317
  Receipt Date: 20090306
  Transmission Date: 20090719
  Serious: Yes (Hospitalization, Other)
  Sender: FDA-Public Use
  Company Number: US-MERCK-0710USA05981

PATIENT
  Sex: Female

DRUGS (3)
  1. FOSAMAX [Suspect]
     Indication: OSTEOPOROSIS
     Route: 048
     Dates: start: 20030314, end: 20050531
  2. FOSAMAX PLUS D [Suspect]
     Indication: OSTEOPOROSIS
     Route: 048
     Dates: start: 20050601, end: 20050801
  3. HORMONES (UNSPECIFIED) [Concomitant]
     Route: 065
     Dates: start: 20020101, end: 20040101

REACTIONS (29)
  - ABSCESS [None]
  - ALLERGY TO PLANTS [None]
  - ANXIETY [None]
  - AORTIC ANEURYSM [None]
  - ARTERIAL OCCLUSIVE DISEASE [None]
  - ARTHRALGIA [None]
  - CARDIAC MURMUR [None]
  - CHONDROCALCINOSIS [None]
  - CHRONIC OBSTRUCTIVE PULMONARY DISEASE [None]
  - DEPRESSION [None]
  - EMPHYSEMA [None]
  - FALL [None]
  - FEAR [None]
  - FRACTURED SACRUM [None]
  - HYPERTENSION [None]
  - HYPOAESTHESIA ORAL [None]
  - IMPAIRED HEALING [None]
  - INFLAMMATION [None]
  - OSTEOMYELITIS [None]
  - OSTEONECROSIS [None]
  - PARAESTHESIA [None]
  - SKIN LESION [None]
  - SPONDYLOLISTHESIS [None]
  - THERAPEUTIC RESPONSE DECREASED [None]
  - TOOTH DISORDER [None]
  - TOOTH FRACTURE [None]
  - TOOTH LOSS [None]
  - TOOTHACHE [None]
  - ULCER [None]
